FAERS Safety Report 25355989 (Version 1)
Quarter: 2025Q2

REPORT INFORMATION
  Report Type: Spontaneous
  Country: US (occurrence: US)
  Receive Date: 20250525
  Receipt Date: 20250525
  Transmission Date: 20250717
  Serious: No
  Sender: AMGEN
  Company Number: US-AMGEN-USASP2025097945

PATIENT
  Age: 78 Year
  Sex: Male

DRUGS (3)
  1. REPATHA [Suspect]
     Active Substance: EVOLOCUMAB
     Indication: Product used for unknown indication
     Route: 065
  2. MOUNJARO [Concomitant]
     Active Substance: TIRZEPATIDE
     Indication: Blood glucose abnormal
  3. VITAMINS [Concomitant]
     Active Substance: VITAMINS

REACTIONS (8)
  - Gait disturbance [Unknown]
  - Blood pressure abnormal [Unknown]
  - Muscular weakness [Unknown]
  - Myositis [Unknown]
  - General physical health deterioration [Recovered/Resolved]
  - Sinus congestion [Unknown]
  - Spinal pain [Unknown]
  - Muscle atrophy [Unknown]

NARRATIVE: CASE EVENT DATE: 20250101
